FAERS Safety Report 13211663 (Version 1)
Quarter: 2017Q1

REPORT INFORMATION
  Report Type: Spontaneous
  Country: US (occurrence: US)
  Receive Date: 20170209
  Receipt Date: 20170209
  Transmission Date: 20170428
  Serious: No
  Sender: FDA-Public Use
  Company Number: US-ALLERGAN-1655760US

PATIENT
  Sex: Female

DRUGS (4)
  1. JUVEDERM VOLUMA XC [Concomitant]
     Active Substance: HYALURONIC ACID\LIDOCAINE HYDROCHLORIDE
  2. PROPANOLOL [Concomitant]
     Active Substance: PROPRANOLOL HYDROCHLORIDE
     Indication: MIGRAINE
     Route: 048
  3. BOTOX COSMETIC [Suspect]
     Active Substance: ONABOTULINUMTOXINA
     Indication: MIGRAINE
     Dosage: UNK UNK, SINGLE
     Route: 030
  4. NORTRIPTYLINE [Concomitant]
     Active Substance: NORTRIPTYLINE
     Indication: MIGRAINE
     Route: 048

REACTIONS (7)
  - Aphasia [Unknown]
  - Dyspnoea [Unknown]
  - Local swelling [Unknown]
  - Swelling [Not Recovered/Not Resolved]
  - Ear discomfort [Unknown]
  - Injection site atrophy [Not Recovered/Not Resolved]
  - Rash [Unknown]
